FAERS Safety Report 21992955 (Version 1)
Quarter: 2023Q1

REPORT INFORMATION
  Report Type: Spontaneous
  Country: US (occurrence: US)
  Receive Date: 20230215
  Receipt Date: 20230215
  Transmission Date: 20230418
  Serious: Yes (Other)
  Sender: FDA-Public Use
  Company Number: US-BRISTOL-MYERS SQUIBB COMPANY-2022-141285

PATIENT
  Age: 74 Year
  Sex: Male

DRUGS (1)
  1. LENALIDOMIDE [Suspect]
     Active Substance: LENALIDOMIDE
     Indication: Product used for unknown indication
     Dosage: UNIT-3 CAPSULES?DAILY FOR 14 DAYS
     Route: 048
     Dates: start: 20221104

REACTIONS (3)
  - Neutropenia [Unknown]
  - Off label use [Unknown]
  - White blood cell count decreased [Unknown]
